FAERS Safety Report 23027635 (Version 1)
Quarter: 2023Q4

REPORT INFORMATION
  Report Type: Other
  Country: None (occurrence: CA)
  Receive Date: 20231004
  Receipt Date: 20231004
  Transmission Date: 20240109
  Serious: Yes (Hospitalization, Other)
  Sender: FDA-Public Use
  Company Number: CA-Marksans Pharma Limited-2146547

PATIENT
  Sex: Male
  Weight: 2.2 kg

DRUGS (1)
  1. ACETAMINOPHEN [Suspect]
     Active Substance: ACETAMINOPHEN
     Indication: Product used for unknown indication
     Route: 065

REACTIONS (13)
  - Depression [Unknown]
  - Encephalopathy [Unknown]
  - Dyskinesia [Unknown]
  - Metabolic acidosis [Unknown]
  - Hypoglycaemia [Recovered/Resolved]
  - Alanine aminotransferase increased [Recovering/Resolving]
  - Aspartate aminotransferase increased [Recovering/Resolving]
  - Blood bilirubin increased [Recovered/Resolved]
  - Hyperbilirubinaemia [Recovered/Resolved]
  - International normalised ratio increased [Recovered/Resolved]
  - Activated partial thromboplastin time prolonged [Recovered/Resolved]
  - Foetal exposure timing unspecified [Unknown]
  - Foetal heart rate deceleration abnormality [Unknown]
